FAERS Safety Report 9586625 (Version 2)
Quarter: 2013Q4

REPORT INFORMATION
  Report Type: Report from Study
  Country: JP (occurrence: JP)
  Receive Date: 20131003
  Receipt Date: 20131025
  Transmission Date: 20140711
  Serious: Yes (Hospitalization)
  Sender: FDA-Public Use
  Company Number: JP-ACTELION-A-CH2013-89229

PATIENT
  Age: 45 Year
  Sex: Female
  Weight: 42.8 kg

DRUGS (18)
  1. TRACLEER [Suspect]
     Indication: PULMONARY ARTERIAL HYPERTENSION
     Dosage: 62.5 MG, BID
     Route: 048
     Dates: start: 20110228, end: 20120113
  2. TRACLEER [Suspect]
     Dosage: 31.25 MG, BID
     Route: 048
     Dates: start: 20110225, end: 20110227
  3. TRACLEER [Suspect]
     Dosage: 62.5 MG, QD
     Route: 048
     Dates: start: 20120114, end: 20120116
  4. TADALAFIL [Suspect]
     Indication: PULMONARY ARTERIAL HYPERTENSION
     Dosage: 10 MG, QD
     Route: 048
     Dates: start: 20110215, end: 20110220
  5. TADALAFIL [Suspect]
     Dosage: 20 MG, QD
     Route: 048
     Dates: start: 20110221, end: 20110221
  6. TADALAFIL [Suspect]
     Dosage: 30 MG, QD
     Route: 048
     Dates: start: 20110222, end: 20110222
  7. TADALAFIL [Suspect]
     Dosage: 40 MG, QD
     Route: 048
     Dates: start: 20110223
  8. RABEPRAZOLE SODIUM [Suspect]
     Indication: PRODUCT USED FOR UNKNOWN INDICATION
     Dosage: UNK
     Route: 048
     Dates: start: 20110701, end: 20110829
  9. FAMOTIDINE [Suspect]
     Indication: PRODUCT USED FOR UNKNOWN INDICATION
     Dosage: UNK
     Route: 048
     Dates: start: 20110829, end: 20110831
  10. CIBENZOLINE SUCCINATE [Suspect]
     Indication: SUPRAVENTRICULAR TACHYCARDIA
     Dosage: 50 MG, TID
     Route: 048
     Dates: start: 20111019
  11. EPOPROSTENOL SODIUM [Concomitant]
  12. DIGOXIN [Concomitant]
  13. FUROSEMIDE [Concomitant]
  14. SPIRONOLACTONE [Concomitant]
  15. TORASEMIDE [Concomitant]
  16. POTASSIUM CHLORIDE [Concomitant]
  17. TEPRENONE [Concomitant]
  18. OXYGEN [Concomitant]

REACTIONS (11)
  - Drug-induced liver injury [Recovered/Resolved]
  - Supraventricular tachycardia [Recovering/Resolving]
  - Epigastric discomfort [Recovering/Resolving]
  - Anaemia [Recovered/Resolved]
  - Aspartate aminotransferase increased [Recovered/Resolved]
  - Alanine aminotransferase increased [Recovered/Resolved]
  - Gamma-glutamyltransferase increased [Recovered/Resolved]
  - Blood bilirubin abnormal [Recovered/Resolved]
  - Red blood cell count decreased [Recovered/Resolved]
  - Haemoglobin decreased [Recovered/Resolved]
  - Haematocrit decreased [Recovered/Resolved]
